FAERS Safety Report 6356598-X (Version None)
Quarter: 2009Q3

REPORT INFORMATION
  Report Type: 
  Country: None (occurrence: None)
  Receive Date: 20090910
  Receipt Date: 20090910
  Transmission Date: 20100115
  Serious: Yes (Life-Threatening, Hospitalization)
  Sender: FDA-Public Use
  Company Number: None

PATIENT
  Age: 74 Year
  Sex: Female
  Weight: 52.6173 kg

DRUGS (1)
  1. ERGOCALCIFEROL [Suspect]
     Indication: OSTEOPOROSIS
     Dosage: 1 CAPSULE EVERY WEEK PO
     Route: 048
     Dates: start: 20070720, end: 20090704

REACTIONS (8)
  - ASTHENIA [None]
  - MIGRAINE [None]
  - MUSCLE INJURY [None]
  - NERVE INJURY [None]
  - SINUS DISORDER [None]
  - SLEEP DISORDER [None]
  - UNEVALUABLE EVENT [None]
  - WEIGHT DECREASED [None]
